FAERS Safety Report 8612069-9 (Version None)
Quarter: 2012Q3

REPORT INFORMATION
  Report Type: 
  Country: None (occurrence: None)
  Receive Date: 20120809
  Receipt Date: 20120712
  Transmission Date: 20120928
  Serious: Yes (Hospitalization)
  Sender: FDA-Public Use
  Company Number: INT_00084_2012

PATIENT
  Age: 70 Year
  Sex: Female

DRUGS (14)
  1. ENALAPRIL MALEATE [Concomitant]
  2. FUROSEMIDE [Concomitant]
  3. DORZOLAMIDE HYDROCHLORIDE (UNKNOWN) [Concomitant]
  4. CEFTRIAXONE [Suspect]
     Indication: PNEUMONIA
     Dosage: (DF)
  5. ASPIRIN [Concomitant]
  6. THEOPHYLLINE [Concomitant]
  7. AMITRIPTYLINE HCL [Concomitant]
  8. VERAPAMIL [Concomitant]
  9. GLYBURIDE [Concomitant]
  10. SIMVASTATIN [Concomitant]
  11. CITROPRAM (UNKNOWN) [Concomitant]
  12. METFORMIN HYDROCHLORIDE [Concomitant]
  13. LATANOPROST (UNKNOWN) [Concomitant]
  14. OMEPRAZOLE [Concomitant]

REACTIONS (17)
  - TOXIC EPIDERMAL NECROLYSIS [None]
  - DISORIENTATION [None]
  - LEUKOPENIA [None]
  - BLOOD CULTURE POSITIVE [None]
  - ACUTE RESPIRATORY DISTRESS SYNDROME [None]
  - KLEBSIELLA TEST POSITIVE [None]
  - THROMBOCYTOPENIA [None]
  - HYPOMAGNESAEMIA [None]
  - BURNS SECOND DEGREE [None]
  - PNEUMONIA [None]
  - HYPOGLYCAEMIA [None]
  - PROTEUS TEST POSITIVE [None]
  - ENTEROBACTER TEST POSITIVE [None]
  - THERMAL BURN [None]
  - HAEMORRHAGE INTRACRANIAL [None]
  - PSEUDOMONAS TEST POSITIVE [None]
  - EPIDERMOLYSIS [None]
